FAERS Safety Report 10704252 (Version 1)
Quarter: 2014Q4

REPORT INFORMATION
  Report Type: Report from Study
  Country: US (occurrence: None)
  Receive Date: 20141224
  Receipt Date: 20141224
  Transmission Date: 20150529
  Serious: No
  Sender: FDA-Public Use
  Company Number: CABO-14004956

PATIENT
  Age: 73 Year
  Sex: Male

DRUGS (1)
  1. COMETRIQ [Suspect]
     Active Substance: CABOZANTINIB S-MALATE
     Indication: METASTASES TO BONE MARROW
     Route: 048
     Dates: start: 20141108

REACTIONS (5)
  - Vomiting [None]
  - Nausea [None]
  - Off label use [None]
  - Pain in extremity [None]
  - Bone pain [None]

NARRATIVE: CASE EVENT DATE: 2014
